FAERS Safety Report 23188592 (Version 2)
Quarter: 2023Q4

REPORT INFORMATION
  Report Type: Spontaneous
  Country: US (occurrence: US)
  Receive Date: 20231115
  Receipt Date: 20231121
  Transmission Date: 20240110
  Serious: No
  Sender: FDA-Public Use
  Company Number: US-PFIZER INC-202300361865

PATIENT
  Age: 66 Year
  Sex: Female

DRUGS (1)
  1. DOFETILIDE [Suspect]
     Active Substance: DOFETILIDE
     Dosage: 375 MG, 2X/DAY

REACTIONS (7)
  - Hypersensitivity [Unknown]
  - Headache [Unknown]
  - Illness [Unknown]
  - Loss of personal independence in daily activities [Unknown]
  - Illness [Unknown]
  - Malaise [Unknown]
  - Feeling abnormal [Unknown]
